FAERS Safety Report 11483644 (Version 2)
Quarter: 2015Q3

REPORT INFORMATION
  Report Type: Spontaneous
  Country: US (occurrence: US)
  Receive Date: 20150903
  Receipt Date: 20150903
  Transmission Date: 20151125
  Serious: No
  Sender: FDA-Public Use
  Company Number: US-ELI_LILLY_AND_COMPANY-US201205001048

PATIENT
  Age: 32 Year
  Sex: Female
  Weight: 113.38 kg

DRUGS (2)
  1. CYMBALTA [Suspect]
     Active Substance: DULOXETINE HYDROCHLORIDE
     Indication: PAIN
     Dosage: 20 MG, UNKNOWN
  2. CYMBALTA [Suspect]
     Active Substance: DULOXETINE HYDROCHLORIDE
     Dosage: UNK, UNKNOWN
     Dates: end: 20120425

REACTIONS (3)
  - Feeling abnormal [Not Recovered/Not Resolved]
  - Illusion [Not Recovered/Not Resolved]
  - Wrong technique in product usage process [Recovered/Resolved]
